FAERS Safety Report 5941994-2 (Version None)
Quarter: 2008Q4

REPORT INFORMATION
  Report Type: 
  Country: None (occurrence: None)
  Receive Date: 20081104
  Receipt Date: 20081104
  Transmission Date: 20090506
  Serious: Yes (Other)
  Sender: FDA-Public Use
  Company Number: None

PATIENT
  Age: 64 Year
  Sex: Male
  Weight: 68 kg

DRUGS (1)
  1. VARENICLINE [Suspect]
     Dosage: 0.5 MG BID PO
     Route: 048
     Dates: start: 20070608, end: 20070612

REACTIONS (1)
  - DYSPEPSIA [None]
